FAERS Safety Report 20128942 (Version 1)
Quarter: 2021Q4

REPORT INFORMATION
  Report Type: Spontaneous
  Country: ZA (occurrence: ZA)
  Receive Date: 20211130
  Receipt Date: 20211130
  Transmission Date: 20220304
  Serious: Yes (Hospitalization, Other)
  Sender: FDA-Public Use
  Company Number: ZA-NOVOPROD-869481

PATIENT
  Age: 72 Year
  Sex: Female

DRUGS (4)
  1. VAGIFEM [Suspect]
     Active Substance: ESTRADIOL
     Indication: Hormone therapy
     Dosage: 10 ?G
     Route: 067
  2. CARDIOMAX [UBIDECARENONE] [Concomitant]
     Indication: Product used for unknown indication
     Dosage: 150 ?G
     Route: 048
  3. FERRIMED [FERRIC HYDROXIDE POLYMALTOSE COMPLEX;FOLIC ACID] [Concomitant]
     Indication: Mineral supplementation
     Dosage: 100 MG
     Route: 048
  4. ESOMEPRAZOLE [Concomitant]
     Active Substance: ESOMEPRAZOLE
     Indication: Ulcer
     Dosage: 40 MG
     Route: 048

REACTIONS (1)
  - Dysphagia [Unknown]
